FAERS Safety Report 20307913 (Version 2)
Quarter: 2022Q1

REPORT INFORMATION
  Report Type: Spontaneous
  Country: NL (occurrence: NL)
  Receive Date: 20220107
  Receipt Date: 20220201
  Transmission Date: 20220423
  Serious: Yes (Death, Life-Threatening)
  Sender: FDA-Public Use
  Company Number: None

PATIENT
  Sex: Female
  Weight: 92 kg

DRUGS (17)
  1. AMIODARONE [Suspect]
     Active Substance: AMIODARONE
     Indication: Arrhythmia
     Dosage: 200 MILLIGRAM DAILY; 1 X DAILY 1,AMIODARON TABLET 200MG / BRAND NAME NOT SPECIFIED
     Route: 065
     Dates: start: 2018, end: 20211209
  2. SPIRONOLACTONE [Concomitant]
     Active Substance: SPIRONOLACTONE
     Dosage: 12.5 MILLIGRAM DAILY; 1 DD 1,SPIRONOLACTON TABLET 12,5MG / BRAND NAME NOT SPECIFIED,THERAPY END DATE
     Dates: start: 20211103
  3. PANTOPRAZOLE SODIUM [Concomitant]
     Active Substance: PANTOPRAZOLE SODIUM
     Dosage: 40 MILLIGRAM DAILY; 1 DD 1,PANTOPRAZOL TABLET MSR 40MG / BRAND NAME NOT SPECIFIED
     Dates: start: 20210823, end: 20211016
  4. CALCIUMCARB/COLECALC [Concomitant]
     Dosage: 1 DOSAGE FORMS DAILY; 1 DD 1,CALCIUMCARB/COLECALC CHEWTB 1.25G/800IE (500MG CA) / CALCI CHEW D3 CHEW
     Dates: start: 20210823, end: 20211208
  5. POLYETHYLENE GLYCOLS [Concomitant]
     Active Substance: POLYETHYLENE GLYCOLS
     Dosage: IF NECESSARY USE IN CASE OF HARD STOOLS,MACROGOL/SALTS PDR V BEVERAGE (MOVIC/MOLAX/LAXT/GEN) / BRAND
     Dates: start: 20210823
  6. ACETAMINOPHEN [Concomitant]
     Active Substance: ACETAMINOPHEN
     Dosage: 3 DOSAGE FORMS DAILY; 3 X DAILY PIECES,PARACETAMOL TABLET 500MG / BRAND NAME NOT SPECIFIED,THERAPY E
     Dates: start: 20211014
  7. DULOXETINE [Concomitant]
     Active Substance: DULOXETINE
     Dosage: 30 MILLIGRAM DAILY; 1 DD 1,DULOXETINE CAPSULE MSR 30MG / BRAND NAME NOT SPECIFIED
     Dates: start: 20210823, end: 20211015
  8. LACTULOSE [Concomitant]
     Active Substance: LACTULOSE
     Dosage: 90 ML DAILY; 3 DD 30 ML,LACTULOSE SYRUP 670MG/ML (500MG/G) / BRAND NAME NOT SPECIFIED,THERAPY END DA
     Dates: start: 20210902
  9. LIDOCAINE [Concomitant]
     Active Substance: LIDOCAINE
     Dosage: 2 DD,LIDOCAINE VASELINECREME 30MG/G / BRAND NAME NOT SPECIFIED,THERAPY END DATE :ASKU,UNIT DOSE:1DF
     Dates: start: 20211119
  10. POTASSIUM CHLORIDE/SLOW K [Concomitant]
     Dosage: 1800 MILLIGRAM DAILY; 3 DD 1,POTASSIUM CHLORIDEMGA 600MG (8MMOL) / SLOW K TABLET MGA 600MG
     Dates: start: 20211123, end: 20211208
  11. CARVEDILOL [Concomitant]
     Active Substance: CARVEDILOL
     Dosage: 18.75 MILLIGRAM DAILY; 3 DD 1,CARVEDILOL TABLET 6.25MG / BRAND NAME NOT SPECIFIED,THERAPY END DATE :
     Dates: start: 20210823
  12. FENTANYL [Concomitant]
     Active Substance: FENTANYL
     Dosage: 1 X PER 3 DAYS 1 PATCH,FENTANYL PLASTER 12UG/HOUR (GENERIC+DUROGESIC) / BRAND NAME NOT SPECIFIED,UNI
     Dates: start: 20210823, end: 20211014
  13. AMLODIPINE [Concomitant]
     Active Substance: AMLODIPINE BESYLATE
     Dosage: 5 MILLIGRAM DAILY; 1 DD 1,AMLODIPINE TABLET 5MG / BRAND NAME NOT SPECIFIED
     Dates: start: 20210823, end: 20211103
  14. FOSFOMYCIN [Concomitant]
     Active Substance: FOSFOMYCIN
     Dosage: 3 GRAM DAILY; 1 DD 1,FOSFOMYCINE POWDER V BEVERAGE 3G / BRAND NAME NOT SPECIFIED
     Dates: start: 20211109, end: 20211111
  15. APIXABAN/ELIQUIS [Concomitant]
     Dosage: 10 MILLIGRAM DAILY; 2 DD 1,APIXABAN TABLET 5MG / ELIQUIS TABLET FILM COATED 5MG,THERAPY END DATE :AS
     Dates: start: 20210823
  16. LEVOTHYROXINE (SODIUM) [Concomitant]
     Dosage: 100 MICROGRAM DAILY; 1 DD 1,LEVOTHYROXINE TABLET 100UG (SODIUM) / BRAND NAME NOT SPECIFIED,THERAPY E
     Dates: start: 20211023
  17. ROSUVASTATIN [Concomitant]
     Active Substance: ROSUVASTATIN
     Dosage: 5 MILLIGRAM DAILY; 1 DD 1,ROSUVASTATIN TABLET 5MG / BRAND NAME NOT SPECIFIED
     Dates: start: 20210823, end: 20211208

REACTIONS (2)
  - Hepatic cirrhosis [Fatal]
  - Varices oesophageal [Not Recovered/Not Resolved]
